FAERS Safety Report 18263127 (Version 1)
Quarter: 2020Q3

REPORT INFORMATION
  Report Type: Spontaneous
  Country: AE (occurrence: AE)
  Receive Date: 20200914
  Receipt Date: 20200914
  Transmission Date: 20201103
  Serious: Yes (Other)
  Sender: FDA-Public Use
  Company Number: AE-AMERICAN REGENT INC-2020001862

PATIENT
  Age: 30 Year
  Sex: Female

DRUGS (1)
  1. FERINJECT [Suspect]
     Active Substance: FERRIC CARBOXYMALTOSE
     Indication: IRON DEFICIENCY ANAEMIA
     Dosage: DILUTED 500 ML IN 100 UNSPECIFIED MEDIUM, ONCE (500 ML, ONCE)

REACTIONS (2)
  - Maternal exposure during pregnancy [Unknown]
  - Dyspnoea [Recovered/Resolved]
